FAERS Safety Report 25523195 (Version 1)
Quarter: 2025Q3

REPORT INFORMATION
  Report Type: Report from Study
  Country: EU (occurrence: EU)
  Receive Date: 20250707
  Receipt Date: 20250707
  Transmission Date: 20251020
  Serious: Yes (Hospitalization)
  Sender: AMGEN
  Company Number: EU-ROCHE-10000322048

PATIENT

DRUGS (4)
  1. PANITUMUMAB [Suspect]
     Active Substance: PANITUMUMAB
     Indication: Neoplasm malignant
     Dosage: MOST RECENT DOSE (274MG) OF CANCER TREATMENTPRIOR TO AE/SAE ONSET: 22-JAN-2025
     Route: 040
  2. IRINOTECAN [Suspect]
     Active Substance: IRINOTECAN
     Indication: Neoplasm malignant
     Dosage: MOST RECENT DOSE (439MG) OF CANCER TREATMENTPRIOR TO AE/SAE ONSET: 22-JAN-2025
     Route: 040
     Dates: start: 20250122
  3. LEUCOVORIN CALCIUM [Suspect]
     Active Substance: LEUCOVORIN CALCIUM
     Indication: Neoplasm malignant
     Dosage: MOST RECENT DOSE (976MG) OF CANCER TREATMENTPRIOR TO AE/SAE ONSET: 22-JAN-2025
     Route: 040
     Dates: start: 20250122
  4. FLUOROURACIL [Suspect]
     Active Substance: FLUOROURACIL
     Indication: Neoplasm malignant
     Dosage: MOST RECENT DOSE (5856MG)OF CANCERTREATMENT PRIOR TO AE/SAE ONSET 22-JAN-2025 FREQUENCY: D1,2QD15
     Route: 040
     Dates: start: 20250122

REACTIONS (1)
  - Urinary tract infection [Recovered/Resolved]

NARRATIVE: CASE EVENT DATE: 20250201
